FAERS Safety Report 18725933 (Version 3)
Quarter: 2021Q2

REPORT INFORMATION
  Report Type: Spontaneous
  Country: US (occurrence: US)
  Receive Date: 20210111
  Receipt Date: 20210527
  Transmission Date: 20210717
  Serious: Yes (Death, Hospitalization)
  Sender: FDA-Public Use
  Company Number: US-FARMAPROD-202012-1780

PATIENT
  Age: 62 Year
  Sex: Male

DRUGS (13)
  1. INVELTYS [Concomitant]
     Active Substance: LOTEPREDNOL ETABONATE
  2. GEMFIBROZIL. [Concomitant]
     Active Substance: GEMFIBROZIL
  3. BUTALBITAL?ACETAMINOPHEN?CAFFE [Concomitant]
  4. TECFIDERA [Concomitant]
     Active Substance: DIMETHYL FUMARATE
  5. LEVOTHYROXINE SODIUM. [Concomitant]
     Active Substance: LEVOTHYROXINE SODIUM
  6. GENTEAL TEARS SEVERE [Concomitant]
     Active Substance: HYPROMELLOSE 2910 (4000 MPA.S)
  7. RESTASIS [Concomitant]
     Active Substance: CYCLOSPORINE
  8. ASPIRIN. [Concomitant]
     Active Substance: ASPIRIN
  9. METFORMIN ER GASTRIC [Concomitant]
  10. ARTIFICIAL TEARS [Concomitant]
     Active Substance: GLYCERIN\HYPROMELLOSES\POLYETHYLENE GLYCOL 400
     Dosage: 0.1%?0.3%
  11. OXERVATE [Suspect]
     Active Substance: CENEGERMIN-BKBJ
     Indication: NEUROTROPHIC KERATOPATHY
     Route: 047
     Dates: start: 20201116, end: 202012
  12. CENTRUM SILVER [Concomitant]
     Active Substance: MINERALS\VITAMINS
     Dosage: 0.4 MG/300 MCG/250 MCG
  13. TOPIRAMATE. [Concomitant]
     Active Substance: TOPIRAMATE

REACTIONS (2)
  - Hip fracture [Unknown]
  - Fall [Unknown]

NARRATIVE: CASE EVENT DATE: 20201224
